FAERS Safety Report 21965124 (Version 1)
Quarter: 2023Q1

REPORT INFORMATION
  Report Type: Spontaneous
  Country: US (occurrence: US)
  Receive Date: 20230207
  Receipt Date: 20230207
  Transmission Date: 20230418
  Serious: Yes (Death, Hospitalization, Other)
  Sender: FDA-Public Use
  Company Number: US-JNJFOC-20230159376

PATIENT
  Age: 18 Year
  Sex: Female

DRUGS (4)
  1. ACETAMINOPHEN [Suspect]
     Active Substance: ACETAMINOPHEN
     Indication: Suicide attempt
     Route: 048
  2. METFORMIN [Concomitant]
     Active Substance: METFORMIN HYDROCHLORIDE
     Indication: Product used for unknown indication
     Route: 065
  3. PHYTONADIONE [Concomitant]
     Active Substance: PHYTONADIONE
     Indication: Product used for unknown indication
     Route: 065
  4. FOMEPIZOLE [Concomitant]
     Active Substance: FOMEPIZOLE
     Indication: Osmolar gap abnormal
     Route: 065

REACTIONS (5)
  - Toxicity to various agents [Fatal]
  - Brain oedema [Fatal]
  - Hypotension [Fatal]
  - Hypoglycaemia [Fatal]
  - Brain death [Fatal]
